FAERS Safety Report 7897694-5 (Version None)
Quarter: 2011Q4

REPORT INFORMATION
  Report Type: 
  Country: None (occurrence: None)
  Receive Date: 20111107
  Receipt Date: 20111027
  Transmission Date: 20120403
  Serious: Yes (Other)
  Sender: FDA-Public Use
  Company Number: US-PERRIGO-11US009302

PATIENT
  Sex: Male

DRUGS (2)
  1. IBUPROFEN [Suspect]
     Indication: HEADACHE
     Dosage: 10,000-12,000 MG, SINGLE
     Route: 048
     Dates: start: 20111027, end: 20111027
  2. IBUPROFEN [Suspect]
     Dosage: UNK, SINGLE
     Route: 048
     Dates: start: 20111027, end: 20111027

REACTIONS (3)
  - OVERDOSE [None]
  - VISUAL IMPAIRMENT [None]
  - DRUG INEFFECTIVE [None]
